FAERS Safety Report 6980371-2 (Version None)
Quarter: 2010Q3

REPORT INFORMATION
  Report Type: 
  Country: None (occurrence: None)
  Receive Date: 20100914
  Receipt Date: 20100217
  Transmission Date: 20110219
  Serious: Yes (Other)
  Sender: FDA-Public Use
  Company Number: US-ABBOTT-10P-163-0624689-00

PATIENT
  Sex: Male
  Weight: 36.774 kg

DRUGS (8)
  1. DEPAKOTE [Suspect]
     Indication: EPILEPSY
     Route: 048
     Dates: start: 20090101
  2. DEPAKOTE [Suspect]
     Route: 048
     Dates: start: 20091001, end: 20100101
  3. DEPAKOTE [Suspect]
     Dosage: 250MGX3 + 125MG QHS
     Route: 048
     Dates: start: 20100121, end: 20100203
  4. DEPAKOTE [Suspect]
     Route: 048
  5. GLUTATHIONE [Concomitant]
     Indication: METAL POISONING
  6. CLONAZEPAM [Concomitant]
     Indication: EPILEPSY
  7. DOXYLAMINE SUCCINATE [Concomitant]
     Indication: INSOMNIA
     Route: 048
  8. DIPHENHYDRAMINE HCL [Concomitant]
     Indication: INSOMNIA
     Route: 048

REACTIONS (4)
  - ANTICONVULSANT DRUG LEVEL DECREASED [None]
  - CONVULSION [None]
  - MEDICATION RESIDUE [None]
  - TARDIVE DYSKINESIA [None]
